FAERS Safety Report 10033970 (Version 2)
Quarter: 2014Q1

REPORT INFORMATION
  Report Type: Report from Study
  Country: US (occurrence: US)
  Receive Date: 20140325
  Receipt Date: 20140325
  Transmission Date: 20141002
  Serious: Yes (Other)
  Sender: FDA-Public Use
  Company Number: US-ROCHE-1321752

PATIENT
  Sex: Female
  Weight: 194 kg

DRUGS (9)
  1. PEGASYS [Suspect]
     Indication: HEPATITIS C
     Dosage: ROTATING SITES (THIGH OR ABDOMEN),
     Route: 030
     Dates: start: 20131028
  2. PEGASYS [Suspect]
     Route: 058
     Dates: start: 20140225
  3. COPEGUS [Suspect]
     Indication: HEPATITIS C
     Dosage: 600MG IN THE MORNING, 600MG AT NIGHT
     Route: 048
     Dates: start: 20131028
  4. COPEGUS [Suspect]
     Dosage: DOSE REDUCED
     Route: 048
     Dates: start: 20140225
  5. INCIVEK [Suspect]
     Indication: PRODUCT USED FOR UNKNOWN INDICATION
     Dosage: 3X A DAY
     Route: 065
  6. VITAMIN D3 [Concomitant]
     Dosage: 2000 UNITS DAILY
     Route: 065
  7. SERTRALINE [Concomitant]
     Route: 065
  8. TRAMADOL [Concomitant]
     Dosage: 1 EVERY 6 HOURS IF NEEDED
     Route: 065
  9. SOVALDI [Concomitant]

REACTIONS (5)
  - Platelet count decreased [Unknown]
  - White blood cell count decreased [Unknown]
  - Blood count abnormal [Unknown]
  - Pancytopenia [Unknown]
  - Anaemia [Unknown]
